FAERS Safety Report 25907546 (Version 1)
Quarter: 2025Q4

REPORT INFORMATION
  Report Type: Spontaneous
  Country: EU (occurrence: EU)
  Receive Date: 20251010
  Receipt Date: 20251010
  Transmission Date: 20260117
  Serious: Yes (Other)
  Sender: RANBAXY
  Company Number: EU-MINISAL02-1045107

PATIENT
  Age: 70 Year
  Sex: Female

DRUGS (5)
  1. OXALIPLATIN [Suspect]
     Active Substance: OXALIPLATIN
     Indication: Rectal adenocarcinoma
     Dosage: 218 MG TOTAL 1 PACK OF OXALIPLATIN SUN 200 MG 1 PACK OF OXALIPLATIN SUN 100 MG
     Route: 042
     Dates: start: 20250523, end: 20250523
  2. OXALIPLATIN [Suspect]
     Active Substance: OXALIPLATIN
     Dosage: 218MG TOT1CONF DI OXALIPLATINO SUN 200MG 1CONF DI OXALIPLATINO SUN 100 MG
     Route: 042
     Dates: start: 20250523, end: 20250523
  3. ONDANSETRON [Concomitant]
     Active Substance: ONDANSETRON
     Indication: Chemotherapy side effect prophylaxis
     Dosage: 8MG
     Route: 042
     Dates: start: 20250523, end: 20250523
  4. DECADRON [Concomitant]
     Active Substance: DEXAMETHASONE
     Indication: Chemotherapy side effect prophylaxis
     Dosage: 16MG
     Route: 042
     Dates: start: 20250523, end: 20250523
  5. TRIMETON [Concomitant]
     Active Substance: CHLORPHENIRAMINE MALEATE
     Indication: Chemotherapy side effect prophylaxis
     Dosage: 10MG
     Route: 042
     Dates: start: 20250523, end: 20250523

REACTIONS (2)
  - Dysphonia [Recovered/Resolved]
  - Oropharyngeal pain [Recovered/Resolved]

NARRATIVE: CASE EVENT DATE: 20250523
